FAERS Safety Report 17711589 (Version 2)
Quarter: 2020Q3

REPORT INFORMATION
  Report Type: Spontaneous
  Country: US (occurrence: US)
  Receive Date: 20200427
  Receipt Date: 20200703
  Transmission Date: 20201102
  Serious: No
  Sender: FDA-Public Use
  Company Number: US-VERTEX PHARMACEUTICALS-2020-009472

PATIENT
  Sex: Female
  Weight: 42 kg

DRUGS (14)
  1. TRIKAFTA [Suspect]
     Active Substance: ELEXACAFTOR\IVACAFTOR\TEZACAFTOR
     Indication: CYSTIC FIBROSIS
     Dosage: 2 TABS 100MG ELEXACAFTOR/ 50MG TEZACAFTOR/ 75MG IVACAFTOR AM, 1 TAB 150MG IVACAFTOR PM
     Route: 048
     Dates: start: 20200402
  2. CREON [Concomitant]
     Active Substance: PANCRELIPASE AMYLASE\PANCRELIPASE LIPASE\PANCRELIPASE PROTEASE
     Dosage: 24?76?120K CAPSULE DR
  3. METOPROLOL TARTRATE. [Concomitant]
     Active Substance: METOPROLOL TARTRATE
     Dosage: 25 MG TABLET
  4. PROGRAF [Concomitant]
     Active Substance: TACROLIMUS
     Dosage: 1 MG CAPSULE
  5. ACETAMINOPHEN. [Concomitant]
     Active Substance: ACETAMINOPHEN
     Dosage: 325 MG TABLET
  6. SINGULAIR [Concomitant]
     Active Substance: MONTELUKAST SODIUM
     Dosage: 10 MG TABLET
  7. AZATHIOPRINE. [Concomitant]
     Active Substance: AZATHIOPRINE
     Dosage: 50 MG TABLET
  8. LEVEMIR [Concomitant]
     Active Substance: INSULIN DETEMIR
  9. CALCIUM + VIT D [Concomitant]
     Active Substance: CALCIUM\VITAMIN D
     Dosage: CALCIUM 600 + VIT D
  10. NOVOLOG [Concomitant]
     Active Substance: INSULIN ASPART
  11. OMEPRAZOLE. [Concomitant]
     Active Substance: OMEPRAZOLE
     Dosage: 40 MG CAPSULE DR
  12. AZITHROMYCIN ANHYDROUS. [Concomitant]
     Active Substance: AZITHROMYCIN ANHYDROUS
     Dosage: 250 MG TABLET
  13. PREDNISONE. [Concomitant]
     Active Substance: PREDNISONE
     Dosage: 2.5 MG TABLET
  14. BACTRIM [Concomitant]
     Active Substance: SULFAMETHOXAZOLE\TRIMETHOPRIM
     Dosage: 400MG?80MG TABLET

REACTIONS (3)
  - Headache [Unknown]
  - Abdominal pain upper [Unknown]
  - Weight decreased [Unknown]

NARRATIVE: CASE EVENT DATE: 2020
